FAERS Safety Report 6982210-2 (Version None)
Quarter: 2010Q3

REPORT INFORMATION
  Report Type: 
  Country: None (occurrence: None)
  Receive Date: 20100914
  Receipt Date: 20091125
  Transmission Date: 20110219
  Serious: Yes (Other)
  Sender: FDA-Public Use
  Company Number: US-PFIZER INC-2009304059

PATIENT
  Sex: Female
  Weight: 47.619 kg

DRUGS (1)
  1. LYRICA [Suspect]
     Indication: FIBROMYALGIA
     Dosage: 150 MG, 3X/DAY

REACTIONS (3)
  - ANAEMIA [None]
  - BLOOD POTASSIUM INCREASED [None]
  - WEIGHT INCREASED [None]
